FAERS Safety Report 16678606 (Version 1)
Quarter: 2019Q3

REPORT INFORMATION
  Report Type: Spontaneous
  Country: FR (occurrence: FR)
  Receive Date: 20190807
  Receipt Date: 20190807
  Transmission Date: 20191004
  Serious: Yes (Hospitalization)
  Sender: FDA-Public Use
  Company Number: FR-PFIZER INC-2019331824

PATIENT
  Age: 33 Year
  Sex: Female

DRUGS (2)
  1. ZYVOXID [Suspect]
     Active Substance: LINEZOLID
     Indication: MENINGITIS
     Dosage: 1800 MG, 1X/DAY
     Route: 048
     Dates: start: 20190629, end: 20190702
  2. MERONEM [Suspect]
     Active Substance: MEROPENEM
     Indication: MENINGITIS
     Dosage: 6 G, 1X/DAY
     Route: 042
     Dates: start: 20190628, end: 20190702

REACTIONS (2)
  - Eosinophilia [Recovered/Resolved]
  - Neutropenia [Recovered/Resolved with Sequelae]

NARRATIVE: CASE EVENT DATE: 20190702
